FAERS Safety Report 19834573 (Version 1)
Quarter: 2021Q3

REPORT INFORMATION
  Report Type: Other
  Country: US (occurrence: US)
  Receive Date: 20210915
  Receipt Date: 20210915
  Transmission Date: 20211014
  Serious: No
  Sender: FDA-Public Use
  Company Number: US-LEADIANT BIOSCIENCES INC-2020STPI000335

PATIENT
  Sex: Male

DRUGS (6)
  1. GLEOSTINE [Concomitant]
     Active Substance: LOMUSTINE
  2. NORCO [Concomitant]
     Active Substance: ACETAMINOPHEN\HYDROCODONE BITARTRATE
  3. MATULANE [Suspect]
     Active Substance: PROCARBAZINE HYDROCHLORIDE
     Indication: BRAIN NEOPLASM MALIGNANT
     Dosage: 100 MG, QD ON DAYS 8?21 OF EACH 42 DAY CYCLE
     Route: 048
     Dates: start: 20191223
  4. DOCUSATE [Concomitant]
     Active Substance: DOCUSATE
  5. KEPPRA [Concomitant]
     Active Substance: LEVETIRACETAM
  6. MARQIBO [Concomitant]
     Active Substance: VINCRISTINE SULFATE

REACTIONS (3)
  - Hypoaesthesia [Not Recovered/Not Resolved]
  - Constipation [Not Recovered/Not Resolved]
  - Nausea [Not Recovered/Not Resolved]
